FAERS Safety Report 8254614-1 (Version None)
Quarter: 2012Q1

REPORT INFORMATION
  Report Type: 
  Country: None (occurrence: None)
  Receive Date: 20120329
  Receipt Date: 20120314
  Transmission Date: 20120608
  Serious: Yes (Death, Life-Threatening, Hospitalization)
  Sender: FDA-Public Use
  Company Number: 1203066

PATIENT
  Age: 54 Year
  Sex: Male
  Weight: 119 kg

DRUGS (6)
  1. ACYCLOVIR [Concomitant]
  2. BACTRIM DS [Concomitant]
  3. CYTOXAN [Suspect]
     Indication: CHRONIC LYMPHOCYTIC LEUKAEMIA
     Dosage: 1404 MG ON D1 C1-6, WKS, 1,5,9,13, 17 AND 21, INTRAVENOUS (NOT OTHERWISE SPECIFIED)
     Route: 042
     Dates: start: 20110314, end: 20110802
  4. RITUXIMAB [Suspect]
     Indication: CHRONIC LYMPHOCYTIC LEUKAEMIA
     Dosage: 100 MG MWF CYCLE 1, THEN 878 MG D1 CYCLE 206
     Dates: start: 20110314, end: 20110802
  5. PENTOSTATIN [Suspect]
     Indication: CHRONIC LYMPHOCYTIC LEUKAEMIA
     Dosage: 9.36 MG ON DAY 1 C1-6, INTRAVENOUS (NOT OTHERWISE SPECIFIED)
     Dates: start: 20110324, end: 20110802
  6. CAMPATH [Suspect]
     Indication: CHRONIC LYMPHOCYTIC LEUKAEMIA
     Dosage: 30 MG, TIW X 4 WEEKS, SUBCUTANEOUS
     Route: 058
     Dates: start: 20111031, end: 20111125

REACTIONS (9)
  - LUNG INFECTION [None]
  - INFUSION RELATED REACTION [None]
  - ACUTE RESPIRATORY DISTRESS SYNDROME [None]
  - SEPTIC SHOCK [None]
  - NASOPHARYNGITIS [None]
  - PULMONARY EMBOLISM [None]
  - OROPHARYNGEAL PAIN [None]
  - CARDIO-RESPIRATORY ARREST [None]
  - RESPIRATORY SYNCYTIAL VIRUS TEST POSITIVE [None]
